FAERS Safety Report 12178769 (Version 1)
Quarter: 2016Q1

REPORT INFORMATION
  Report Type: Spontaneous
  Country: US (occurrence: US)
  Receive Date: 20160314
  Receipt Date: 20160314
  Transmission Date: 20160526
  Serious: No
  Sender: FDA-Public Use
  Company Number: US-SA-2016SA006662

PATIENT
  Age: 77 Year
  Sex: Male

DRUGS (6)
  1. TOUJEO [Suspect]
     Active Substance: INSULIN GLARGINE
     Indication: TYPE 2 DIABETES MELLITUS
     Dosage: DOSE:10 UNIT(S)
     Route: 065
     Dates: start: 201601
  2. SOLOSTAR [Concomitant]
     Active Substance: DEVICE
     Dates: start: 2012, end: 201601
  3. HUMALOG [Concomitant]
     Active Substance: INSULIN LISPRO
     Dosage: AT MEALTIMES
     Dates: start: 2012
  4. SOLOSTAR [Concomitant]
     Active Substance: DEVICE
     Indication: TYPE 2 DIABETES MELLITUS
     Dates: start: 201601
  5. LANTUS SOLOSTAR [Concomitant]
     Active Substance: INSULIN GLARGINE
     Dosage: DOSE:10 UNIT(S)
     Dates: start: 2012, end: 201601
  6. LUPRON [Concomitant]
     Active Substance: LEUPROLIDE ACETATE
     Indication: NEOPLASM MALIGNANT
     Dosage: TWICE A YEAR

REACTIONS (5)
  - Nightmare [Unknown]
  - Hypoacusis [Unknown]
  - Memory impairment [Unknown]
  - Blood glucose increased [Unknown]
  - Ear infection [Unknown]

NARRATIVE: CASE EVENT DATE: 201601
